FAERS Safety Report 22264330 (Version 2)
Quarter: 2023Q2

REPORT INFORMATION
  Report Type: Report from Study
  Country: US (occurrence: US)
  Receive Date: 20230428
  Receipt Date: 20230508
  Transmission Date: 20230721
  Serious: No
  Sender: FDA-Public Use
  Company Number: US-002147023-NVSC2023US095031

PATIENT
  Sex: Male

DRUGS (4)
  1. ENTRESTO [Suspect]
     Active Substance: SACUBITRIL\VALSARTAN
     Indication: Product used for unknown indication
     Dosage: UNK
     Route: 065
     Dates: start: 20230120
  2. LASIX [Suspect]
     Active Substance: FUROSEMIDE
     Indication: Limb discomfort
     Dosage: UNK, AS NEEDED
     Route: 065
  3. LASIX [Suspect]
     Active Substance: FUROSEMIDE
     Indication: Swelling
  4. LASIX [Suspect]
     Active Substance: FUROSEMIDE
     Indication: Joint swelling

REACTIONS (5)
  - Joint swelling [Recovering/Resolving]
  - Swelling [Recovering/Resolving]
  - Limb discomfort [Recovering/Resolving]
  - Pollakiuria [Recovering/Resolving]
  - Dyspnoea [Recovering/Resolving]
